FAERS Safety Report 15051619 (Version 1)
Quarter: 2018Q2

REPORT INFORMATION
  Report Type: Spontaneous
  Country: IR (occurrence: IR)
  Receive Date: 20180622
  Receipt Date: 20180622
  Transmission Date: 20180711
  Serious: Yes (Death, Hospitalization)
  Sender: FDA-Public Use
  Company Number: IR-AKORN PHARMACEUTICALS-2018AKN00896

PATIENT
  Age: 18 Year
  Sex: Male

DRUGS (2)
  1. VORICONAZOLE. [Suspect]
     Active Substance: VORICONAZOLE
     Indication: INFECTION PROPHYLAXIS
     Dosage: 200 MG/KG, 2X/DAY
     Route: 048
  2. CHEMOTHERAPY [Suspect]
     Active Substance: UNSPECIFIED INGREDIENT
     Indication: ACUTE LYMPHOCYTIC LEUKAEMIA
     Route: 065

REACTIONS (3)
  - Mucosal necrosis [Fatal]
  - Sepsis [Fatal]
  - Mucormycosis [Fatal]

NARRATIVE: CASE EVENT DATE: 201706
